FAERS Safety Report 10236176 (Version 1)
Quarter: 2014Q2

REPORT INFORMATION
  Report Type: Spontaneous
  Country: US (occurrence: None)
  Receive Date: 20140612
  Receipt Date: 20140612
  Transmission Date: 20141212
  Serious: No
  Sender: FDA-Public Use
  Company Number: None

PATIENT
  Age: 27 Year
  Sex: Female

DRUGS (1)
  1. HUMIRA 40MG PEN [Suspect]
     Route: 058

REACTIONS (3)
  - Injection site erythema [None]
  - Injection site pruritus [None]
  - Injection site reaction [None]
